FAERS Safety Report 9215005 (Version 1)
Quarter: 2013Q2

REPORT INFORMATION
  Report Type: Spontaneous
  Country: DE (occurrence: DE)
  Receive Date: 20130405
  Receipt Date: 20130405
  Transmission Date: 20140414
  Serious: Yes (Hospitalization)
  Sender: FDA-Public Use
  Company Number: GXKR2013DE001347

PATIENT
  Age: 51 Year
  Sex: Female
  Weight: 90 kg

DRUGS (4)
  1. 5-FU [Suspect]
     Indication: GASTRIC CANCER
     Dosage: 4800 MG
     Dates: start: 20130313, end: 20130314
  2. OXALIPLATIN [Concomitant]
     Indication: GASTRIC CANCER
     Dosage: 170 MG
     Dates: start: 20130313
  3. FOLINIC ACID [Concomitant]
     Indication: GASTRIC CANCER
     Dosage: 800 MG
     Route: 042
     Dates: start: 20130313
  4. 5-FU [Concomitant]
     Indication: GASTRIC CANCER
     Dosage: 800 MG
     Route: 042
     Dates: start: 20130313

REACTIONS (2)
  - Chills [Recovering/Resolving]
  - Pyrexia [Recovering/Resolving]
